FAERS Safety Report 5727712-1 (Version None)
Quarter: 2008Q2

REPORT INFORMATION
  Report Type: 
  Country: None (occurrence: None)
  Receive Date: 20080501
  Receipt Date: 20070809
  Transmission Date: 20081010
  Serious: Yes (Other)
  Sender: FDA-Public Use
  Company Number: PHEH2007US10965

PATIENT
  Sex: Female

DRUGS (1)
  1. DIOVAN HCT [Suspect]
     Dosage: 160MG VAL/12.5MG HCT
     Dates: start: 20070807

REACTIONS (5)
  - EXPIRED DRUG ADMINISTERED [None]
  - HYPOAESTHESIA ORAL [None]
  - HYPOTENSION [None]
  - SCIATICA [None]
  - URTICARIA [None]
